FAERS Safety Report 25925269 (Version 4)
Quarter: 2025Q4

REPORT INFORMATION
  Report Type: Spontaneous
  Country: JP (occurrence: JP)
  Receive Date: 20251015
  Receipt Date: 20251126
  Transmission Date: 20260117
  Serious: Yes (Other)
  Sender: REGENERON
  Company Number: JP-BAYER-2025A135532

PATIENT
  Age: 75 Year
  Sex: Male

DRUGS (5)
  1. EYLEA [Suspect]
     Active Substance: AFLIBERCEPT
     Indication: Diabetic retinal oedema
     Dosage: 0.07 MOSM/ L, ONCE, LEFT EYE, SOLUTION FOR INJECTION IN PRE-FILLED SYRINGE, 114.3 MG/ML
     Dates: start: 20251010, end: 20251010
  2. GLIMEPIRIDE [Concomitant]
     Active Substance: GLIMEPIRIDE
     Indication: Diabetes mellitus
  3. JANUVIA [Concomitant]
     Active Substance: SITAGLIPTIN PHOSPHATE
     Indication: Diabetes mellitus
     Dosage: UNK
  4. METGLUCO [Concomitant]
     Active Substance: METFORMIN HYDROCHLORIDE
     Indication: Diabetes mellitus
     Dosage: UNK
  5. MIROGABALIN BESYLATE [Concomitant]
     Active Substance: MIROGABALIN BESYLATE
     Indication: Product used for unknown indication
     Dosage: UNK

REACTIONS (7)
  - Blindness [Recovered/Resolved]
  - Macular degeneration [Recovered/Resolved]
  - Retinal occlusive vasculitis [Recovered/Resolved]
  - Non-infectious endophthalmitis [Recovered/Resolved]
  - Hypopyon [Recovered/Resolved]
  - Vitreous opacities [Recovered/Resolved]
  - Vitreous fibrin [Recovered/Resolved]

NARRATIVE: CASE EVENT DATE: 20251014
